FAERS Safety Report 12473152 (Version 1)
Quarter: 2016Q2

REPORT INFORMATION
  Report Type: Other
  Country: IN (occurrence: IN)
  Receive Date: 20160616
  Receipt Date: 20160616
  Transmission Date: 20160815
  Serious: Yes (Hospitalization)
  Sender: FDA-Public Use
  Company Number: IN-CONCORDIA PHARMACEUTICALS INC.-CO-PL-IN-2016-283

PATIENT
  Age: 36 Year
  Sex: Female

DRUGS (2)
  1. HYDROXYCHLOROQUINE SULFATE. [Suspect]
     Active Substance: HYDROXYCHLOROQUINE SULFATE
     Indication: SYSTEMIC LUPUS ERYTHEMATOSUS
     Route: 065
  2. AZATHIOPRINE. [Suspect]
     Active Substance: AZATHIOPRINE
     Indication: SYSTEMIC LUPUS ERYTHEMATOSUS
     Route: 065

REACTIONS (8)
  - Skin exfoliation [None]
  - Inappropriate schedule of drug administration [None]
  - Red blood cell sedimentation rate increased [None]
  - Epidermolysis [None]
  - Hypocomplementaemia [None]
  - Acute cutaneous lupus erythematosus [Recovered/Resolved]
  - Stomatitis [None]
  - Skin lesion [None]
